FAERS Safety Report 7219558-2 (Version None)
Quarter: 2011Q1

REPORT INFORMATION
  Report Type: 
  Country: None (occurrence: None)
  Receive Date: 20110111
  Receipt Date: 20110107
  Transmission Date: 20110831
  Serious: Yes (Other)
  Sender: FDA-Public Use
  Company Number: JP-PFIZER INC-2010162940

PATIENT
  Age: 80 Year
  Sex: Male

DRUGS (3)
  1. TAMSULOSIN HCL [Suspect]
     Dosage: 0.2 MG, 1X/DAY
     Route: 048
  2. BACTRIM [Suspect]
     Dosage: UNK
  3. LIPITOR [Suspect]
     Dosage: UNK
     Route: 048

REACTIONS (2)
  - HYPONATRAEMIA [None]
  - BLOOD POTASSIUM INCREASED [None]
